FAERS Safety Report 24429199 (Version 2)
Quarter: 2024Q4

REPORT INFORMATION
  Report Type: Spontaneous
  Country: CA (occurrence: CA)
  Receive Date: 20241011
  Receipt Date: 20241016
  Transmission Date: 20250115
  Serious: Yes (Death)
  Sender: PFIZER
  Company Number: CA-PFIZER INC-2014162664

PATIENT
  Age: 69 Year
  Sex: Female

DRUGS (9)
  1. LORAZEPAM [Suspect]
     Active Substance: LORAZEPAM
     Dosage: UNK
     Route: 065
  2. HYDROMORPHONE HYDROCHLORIDE [Suspect]
     Active Substance: HYDROMORPHONE HYDROCHLORIDE
     Dosage: UNK
     Route: 065
  3. OXYCODONE HYDROCHLORIDE [Suspect]
     Active Substance: OXYCODONE HYDROCHLORIDE
     Dosage: UNK
     Route: 065
  4. PAROXETINE HYDROCHLORIDE [Suspect]
     Active Substance: PAROXETINE HYDROCHLORIDE
     Dosage: UNK
     Route: 065
  5. ACETAMINOPHEN [Suspect]
     Active Substance: ACETAMINOPHEN
     Dosage: UNK
     Route: 065
  6. DILTIAZEM [Suspect]
     Active Substance: DILTIAZEM
     Dosage: UNK
     Route: 065
  7. DIPHENHYDRAMINE [Suspect]
     Active Substance: DIPHENHYDRAMINE
     Dosage: UNK
     Route: 065
  8. IMIPRAMINE [Suspect]
     Active Substance: IMIPRAMINE
     Dosage: UNK
     Route: 065
  9. DESIPRAMINE HYDROCHLORIDE [Suspect]
     Active Substance: DESIPRAMINE HYDROCHLORIDE
     Dosage: UNK
     Route: 065

REACTIONS (5)
  - Antidepressant drug level above therapeutic [Fatal]
  - Confusional state [Fatal]
  - Dyspnoea [Fatal]
  - Loss of consciousness [Fatal]
  - Toxicity to various agents [Fatal]
